FAERS Safety Report 5409959-7 (Version None)
Quarter: 2007Q3

REPORT INFORMATION
  Report Type: 
  Country: None (occurrence: None)
  Receive Date: 20070713
  Receipt Date: 20070425
  Transmission Date: 20080115
  Serious: No
  Sender: FDA-Public Use
  Company Number: 2007SP001517

PATIENT
  Age: 35 Year
  Sex: Male
  Weight: 61.2356 kg

DRUGS (2)
  1. LUNESTA [Suspect]
     Indication: INSOMNIA
     Dosage: 3 MG;HS;ORAL
     Route: 048
     Dates: start: 20070301
  2. XANAX [Concomitant]

REACTIONS (1)
  - INSOMNIA [None]
